FAERS Safety Report 9155236 (Version 1)
Quarter: 2013Q1

REPORT INFORMATION
  Report Type: Report from Study
  Country: US (occurrence: US)
  Receive Date: 20130311
  Receipt Date: 20130311
  Transmission Date: 20140127
  Serious: Yes (Hospitalization, Other)
  Sender: FDA-Public Use
  Company Number: US-ROCHE-1200113

PATIENT
  Age: 57 None
  Sex: Female
  Weight: 74.46 kg

DRUGS (10)
  1. ACTEMRA [Suspect]
     Indication: RHEUMATOID ARTHRITIS
     Dosage: DATE OF MOST RECENT DOSE PRIOR TO SAE:6/MAR/2013, 06/FEB/2013, 06/JAN/2013, 06/DEC/2012 AT 650 MG, 6
     Route: 042
     Dates: start: 201201
  2. METHOTREXATE [Concomitant]
     Route: 048
  3. CELEBREX [Concomitant]
     Indication: BLOOD CHOLESTEROL INCREASED
     Route: 048
  4. LIPITOR [Concomitant]
     Route: 065
     Dates: start: 20080101
  5. LEVOTHYROXIN [Concomitant]
     Route: 065
  6. FOLIC ACID [Concomitant]
     Route: 065
  7. ASA [Concomitant]
     Route: 048
  8. VICODIN [Concomitant]
     Route: 065
  9. NITRO [Concomitant]
     Route: 065
  10. OXYCODONE [Concomitant]
     Route: 065

REACTIONS (7)
  - Lung disorder [Recovered/Resolved]
  - Joint stiffness [Unknown]
  - Local swelling [Unknown]
  - Genital herpes [Not Recovered/Not Resolved]
  - Stomatitis [Unknown]
  - Pneumonia [Recovered/Resolved]
  - Streptococcal infection [Recovered/Resolved]
